FAERS Safety Report 13413553 (Version 3)
Quarter: 2018Q3

REPORT INFORMATION
  Report Type: Report from Study
  Country: DE (occurrence: DE)
  Receive Date: 20170407
  Receipt Date: 20180817
  Transmission Date: 20181010
  Serious: Yes (Hospitalization, Other)
  Sender: FDA-Public Use
  Company Number: DE-BRISTOL-MYERS SQUIBB COMPANY-BMS-2017-027987

PATIENT
  Age: 52 Year
  Sex: Male

DRUGS (5)
  1. DASATINIB. [Suspect]
     Active Substance: DASATINIB
     Indication: PRODUCT USED FOR UNKNOWN INDICATION
     Dosage: 80 MG, TOTAL DAILY DOSE
     Route: 065
     Dates: start: 20170222, end: 20180116
  2. HYDROXYUREA. [Suspect]
     Active Substance: HYDROXYUREA
     Indication: CHRONIC MYELOID LEUKAEMIA
     Dosage: 500 MG, QD
     Route: 065
     Dates: start: 20160108, end: 20160118
  3. DASATINIB. [Suspect]
     Active Substance: DASATINIB
     Indication: PRODUCT USED FOR UNKNOWN INDICATION
     Dosage: 80 MG, TOTAL
     Route: 065
     Dates: start: 20160914, end: 20170221
  4. DASATINIB. [Suspect]
     Active Substance: DASATINIB
     Indication: PRODUCT USED FOR UNKNOWN INDICATION
     Dosage: 80 MG, TOTAL
     Route: 065
     Dates: start: 20160601, end: 20160909
  5. DASATINIB. [Suspect]
     Active Substance: DASATINIB
     Indication: CHRONIC MYELOID LEUKAEMIA
     Dosage: 100 MG, TOTAL
     Route: 065
     Dates: start: 20160119, end: 20160502

REACTIONS (18)
  - Rhinitis allergic [Recovered/Resolved]
  - Pericarditis [Recovered/Resolved]
  - Dizziness [Recovered/Resolved]
  - Eye infection [Recovered/Resolved]
  - Eyelid oedema [Not Recovered/Not Resolved]
  - Pleurisy [Recovered/Resolved]
  - Dyspepsia [Not Recovered/Not Resolved]
  - Fatigue [Not Recovered/Not Resolved]
  - Gastrointestinal infection [Recovered/Resolved]
  - Anxiety [Not Recovered/Not Resolved]
  - Pain in extremity [Recovered/Resolved]
  - Pericardial effusion [Recovered/Resolved]
  - Vitamin D deficiency [Recovered/Resolved]
  - Pleural effusion [Recovered/Resolved]
  - Urinary tract infection [Recovered/Resolved]
  - Headache [Recovered/Resolved]
  - Thrombosis [Not Recovered/Not Resolved]
  - Nausea [Recovered/Resolved]

NARRATIVE: CASE EVENT DATE: 20160114
